FAERS Safety Report 9010136 (Version 1)
Quarter: 2013Q1

REPORT INFORMATION
  Report Type: Spontaneous
  Country: CN (occurrence: CN)
  Receive Date: 20130110
  Receipt Date: 20130110
  Transmission Date: 20140127
  Serious: Yes (Other)
  Sender: FDA-Public Use
  Company Number: CN-BAYER-2013-001723

PATIENT
  Age: 81 Year
  Sex: Male
  Weight: 68 kg

DRUGS (1)
  1. AVELOX [Suspect]
     Indication: ANTIBIOTIC THERAPY
     Dosage: 400 MG, QD
     Route: 041
     Dates: start: 20091206, end: 20091214

REACTIONS (2)
  - Urinary incontinence [Recovering/Resolving]
  - Expressive language disorder [Recovering/Resolving]
